FAERS Safety Report 21399585 (Version 2)
Quarter: 2022Q4

REPORT INFORMATION
  Report Type: Report from Study
  Country: US (occurrence: US)
  Receive Date: 20221001
  Receipt Date: 20221117
  Transmission Date: 20230113
  Serious: No
  Sender: FDA-Public Use
  Company Number: US-ABBVIE-22K-163-4535793-00

PATIENT
  Sex: Male

DRUGS (2)
  1. IMBRUVICA [Suspect]
     Active Substance: IBRUTINIB
     Indication: Chronic lymphocytic leukaemia
     Route: 048
     Dates: start: 202206
  2. IMBRUVICA [Suspect]
     Active Substance: IBRUTINIB
     Indication: Chronic lymphocytic leukaemia
     Route: 048
     Dates: start: 202208

REACTIONS (12)
  - Nerve injury [Recovering/Resolving]
  - Diabetic complication neurological [Recovered/Resolved]
  - Constipation [Recovering/Resolving]
  - Diabetes mellitus [Unknown]
  - Therapeutic product effect incomplete [Recovering/Resolving]
  - Peripheral nerve injury [Recovering/Resolving]
  - Pollakiuria [Unknown]
  - Increased appetite [Recovering/Resolving]
  - Muscle spasms [Recovering/Resolving]
  - Walking aid user [Unknown]
  - Flatulence [Unknown]
  - Rash [Unknown]

NARRATIVE: CASE EVENT DATE: 20220101
